FAERS Safety Report 10335012 (Version 2)
Quarter: 2014Q4

REPORT INFORMATION
  Report Type: Spontaneous
  Country: US (occurrence: US)
  Receive Date: 20140723
  Receipt Date: 20141124
  Transmission Date: 20150528
  Serious: Yes (Hospitalization, Disabling, Other)
  Sender: FDA-Public Use
  Company Number: US-BAYER-2014-107317

PATIENT
  Age: 22 Year
  Sex: Female
  Weight: 49.89 kg

DRUGS (2)
  1. MIRENA [Suspect]
     Active Substance: LEVONORGESTREL
     Indication: MENORRHAGIA
  2. MIRENA [Suspect]
     Active Substance: LEVONORGESTREL
     Indication: CONTRACEPTION
     Dosage: 20 MCG/24HR, CONT
     Route: 015
     Dates: start: 20060719, end: 20130717

REACTIONS (24)
  - Pain [None]
  - Nausea [None]
  - Dysuria [None]
  - General physical health deterioration [None]
  - Anhedonia [None]
  - Device issue [None]
  - Infertility female [None]
  - Abdominal pain [None]
  - Pelvic pain [None]
  - Emotional distress [None]
  - Anxiety [None]
  - Cervix carcinoma [None]
  - Device misuse [None]
  - Injury [None]
  - Device dislocation [None]
  - Immunodeficiency [None]
  - Kidney infection [None]
  - Urinary tract infection [None]
  - Autoimmune disorder [None]
  - Abdominal pain lower [None]
  - Back pain [None]
  - Fear of death [None]
  - Fatigue [None]
  - Depression [None]

NARRATIVE: CASE EVENT DATE: 2006
